FAERS Safety Report 5331421-0 (Version None)
Quarter: 2007Q2

REPORT INFORMATION
  Report Type: 
  Country: None (occurrence: None)
  Receive Date: 20070522
  Receipt Date: 20070507
  Transmission Date: 20071010
  Serious: Yes (Hospitalization)
  Sender: FDA-Public Use
  Company Number: ES-GENENTECH-241063

PATIENT
  Sex: Male

DRUGS (4)
  1. HERCEPTIN [Suspect]
     Indication: TRANSITIONAL CELL CARCINOMA
     Dosage: 2 MG/KG, 1/WEEK
     Route: 042
     Dates: start: 20070404, end: 20070411
  2. CISPLATIN [Suspect]
     Indication: TRANSITIONAL CELL CARCINOMA
     Dosage: 75 MIU/M2, Q28D
     Route: 042
     Dates: start: 20070404, end: 20070404
  3. GEMCITABINE HCL [Suspect]
     Indication: TRANSITIONAL CELL CARCINOMA
     Dosage: 3000 G/M2, Q28D
     Route: 042
     Dates: start: 20070404, end: 20070411
  4. ENALAPRIL [Concomitant]
     Indication: DRUG USE FOR UNKNOWN INDICATION

REACTIONS (1)
  - ESCHERICHIA URINARY TRACT INFECTION [None]
